FAERS Safety Report 4731435-5 (Version None)
Quarter: 2005Q3

REPORT INFORMATION
  Report Type: 
  Country: None (occurrence: None)
  Receive Date: 20050802
  Receipt Date: 20050726
  Transmission Date: 20060218
  Serious: Yes (Life-Threatening)
  Sender: FDA-Public Use
  Company Number: 200516753GDDC

PATIENT
  Age: 91 Year
  Sex: Female

DRUGS (3)
  1. GLIBENCLAMIDE W/PHENFORMIN HCL [Suspect]
     Indication: DIABETES MELLITUS
     Dosage: DOSE: 3 DOSE FORM 1 X PER DAY/27.5 MG
     Route: 048
     Dates: end: 20050630
  2. ENAPREN [Concomitant]
     Dosage: DOSE: UNK
  3. CIPROXIN [Concomitant]
     Dosage: DOSE: UNK

REACTIONS (5)
  - HYPOGLYCAEMIC COMA [None]
  - HYPOTENSION [None]
  - METABOLIC ACIDOSIS [None]
  - RENAL FAILURE [None]
  - RENAL FAILURE ACUTE [None]
